FAERS Safety Report 9891029 (Version 2)
Quarter: 2014Q2

REPORT INFORMATION
  Report Type: Spontaneous
  Country: IT (occurrence: None)
  Receive Date: 20140210
  Receipt Date: 20140408
  Transmission Date: 20141212
  Serious: Yes (Other)
  Sender: FDA-Public Use
  Company Number: AUR-APL-2014-01340

PATIENT
  Age: 44 Year
  Sex: Female

DRUGS (1)
  1. AMOXICILLIN (AMOXICILLIN) [Suspect]
     Indication: PLEURISY
     Dosage: (1 GM,TOTAL)
     Route: 048
     Dates: start: 20140121, end: 20140121

REACTIONS (2)
  - Face oedema [None]
  - Generalised erythema [None]
